FAERS Safety Report 8759293 (Version 1)
Quarter: 2012Q4

REPORT INFORMATION
  Report Type: Report from Study
  Country: US (occurrence: US)
  Receive Date: 20120829
  Receipt Date: 20120829
  Transmission Date: 20130627
  Serious: Yes (Hospitalization)
  Sender: FDA-Public Use
  Company Number: US-ABBOTT-12P-163-0971625-00

PATIENT
  Sex: Male
  Weight: 59.02 kg

DRUGS (6)
  1. HUMIRA 40 MG/0.8 ML PEN [Suspect]
     Indication: CROHN^S DISEASE
     Dates: start: 200804, end: 2009
  2. HUMIRA 40 MG/0.8 ML PEN [Suspect]
     Dosage: once
     Dates: start: 2009, end: 2009
  3. HUMIRA 40 MG/0.8 ML PEN [Suspect]
     Dosage: once
     Dates: start: 2009, end: 2009
  4. HUMIRA 40 MG/0.8 ML PEN [Suspect]
     Dosage: once
     Dates: start: 2009
  5. PENTASA [Concomitant]
     Indication: CROHN^S DISEASE
  6. IRON [Concomitant]
     Indication: ANAEMIA

REACTIONS (3)
  - Pyrexia [Recovered/Resolved]
  - Crohn^s disease [Recovered/Resolved]
  - Candida sepsis [Recovered/Resolved]
